FAERS Safety Report 12609585 (Version 1)
Quarter: 2016Q3

REPORT INFORMATION
  Report Type: Spontaneous
  Country: US (occurrence: US)
  Receive Date: 20160801
  Receipt Date: 20160801
  Transmission Date: 20161109
  Serious: No
  Sender: FDA-Public Use
  Company Number: US-BIOGEN-2016BI00270609

PATIENT
  Sex: Female

DRUGS (1)
  1. AVONEX [Suspect]
     Active Substance: INTERFERON BETA-1A
     Indication: MULTIPLE SCLEROSIS
     Route: 030
     Dates: start: 2000, end: 2001

REACTIONS (5)
  - Influenza like illness [Recovered/Resolved]
  - Drug intolerance [Unknown]
  - Muscular weakness [Recovered/Resolved]
  - Fall [Recovered/Resolved]
  - Mobility decreased [Not Recovered/Not Resolved]
